FAERS Safety Report 4937960-6 (Version None)
Quarter: 2006Q1

REPORT INFORMATION
  Report Type: 
  Country: None (occurrence: None)
  Receive Date: 20060308
  Receipt Date: 20060308
  Transmission Date: 20060701
  Serious: Yes (Other)
  Sender: FDA-Public Use
  Company Number: None

PATIENT
  Sex: Female
  Weight: 95.2554 kg

DRUGS (6)
  1. BYETTA [Suspect]
     Indication: INSULIN RESISTANCE
     Dosage: 5 MCG BID SQ, 10 MCG BID SQ
     Route: 058
     Dates: start: 20051205, end: 20060105
  2. BYETTA [Suspect]
     Indication: OBESITY
     Dosage: 5 MCG BID SQ, 10 MCG BID SQ
     Route: 058
     Dates: start: 20051205, end: 20060105
  3. BYETTA [Suspect]
     Indication: POLYCYSTIC OVARIES
     Dosage: 5 MCG BID SQ, 10 MCG BID SQ
     Route: 058
     Dates: start: 20051205, end: 20060105
  4. BYETTA [Suspect]
     Indication: INSULIN RESISTANCE
     Dosage: 5 MCG BID SQ, 10 MCG BID SQ
     Route: 058
     Dates: start: 20060106
  5. BYETTA [Suspect]
     Indication: OBESITY
     Dosage: 5 MCG BID SQ, 10 MCG BID SQ
     Route: 058
     Dates: start: 20060106
  6. BYETTA [Suspect]
     Indication: POLYCYSTIC OVARIES
     Dosage: 5 MCG BID SQ, 10 MCG BID SQ
     Route: 058
     Dates: start: 20060106

REACTIONS (2)
  - INJECTION SITE PRURITUS [None]
  - INJECTION SITE URTICARIA [None]
